FAERS Safety Report 9147760 (Version 1)
Quarter: 2013Q1

REPORT INFORMATION
  Report Type: Other
  Country: US (occurrence: US)
  Receive Date: 20130307
  Receipt Date: 20130307
  Transmission Date: 20140127
  Serious: Yes (Death)
  Sender: FDA-Public Use
  Company Number: US-FRI-1000043090

PATIENT
  Sex: Female

DRUGS (2)
  1. NEBIVOLOL [Suspect]
  2. AMLODIPINE [Suspect]

REACTIONS (1)
  - Death [Fatal]
